FAERS Safety Report 5511444-9 (Version None)
Quarter: 2007Q4

REPORT INFORMATION
  Report Type: 
  Country: None (occurrence: None)
  Receive Date: 20071107
  Receipt Date: 20071013
  Transmission Date: 20080405
  Serious: Yes (Life-Threatening)
  Sender: FDA-Public Use
  Company Number: 17721

PATIENT
  Sex: Male
  Weight: 74 kg

DRUGS (6)
  1. VINCRISTINE [Suspect]
     Indication: NON-HODGKIN'S LYMPHOMA
     Dosage: 1.9 MG Q21DAYS IV
     Route: 042
     Dates: start: 20070608, end: 20070629
  2. VINCRISTINE [Suspect]
     Indication: NON-HODGKIN'S LYMPHOMA
     Dosage: 1 MG FREQ IV
     Route: 042
     Dates: start: 20070720
  3. CYCLOPHOSPHAMIDE [Suspect]
     Indication: NON-HODGKIN'S LYMPHOMA
     Dosage: 1450 MG Q21DAYS IV
     Route: 042
     Dates: start: 20070608, end: 20070720
  4. PREDNISONE TAB [Concomitant]
  5. RITUXIMAB [Concomitant]
  6. LORAZEPAM [Concomitant]

REACTIONS (7)
  - EPSTEIN-BARR VIRUS ANTIBODY POSITIVE [None]
  - EPSTEIN-BARR VIRUS ANTIGEN POSITIVE [None]
  - HEPATIC CYST [None]
  - HEPATITIS [None]
  - HEPATITIS A ANTIBODY POSITIVE [None]
  - NAUSEA [None]
  - NEUROPATHY [None]
